FAERS Safety Report 4894455-6 (Version None)
Quarter: 2006Q1

REPORT INFORMATION
  Report Type: 
  Country: None (occurrence: None)
  Receive Date: 20060127
  Receipt Date: 20051125
  Transmission Date: 20060701
  Serious: Yes (Other)
  Sender: FDA-Public Use
  Company Number: DE-ROCHE-426152

PATIENT
  Sex: Female

DRUGS (2)
  1. BONDRONAT [Suspect]
     Indication: DRUG USE FOR UNKNOWN INDICATION
     Route: 042
  2. THEOPHYLLINE [Suspect]
     Route: 065

REACTIONS (3)
  - DRUG LEVEL INCREASED [None]
  - EPILEPSY [None]
  - NERVOUS SYSTEM DISORDER [None]
